FAERS Safety Report 25704002 (Version 1)
Quarter: 2025Q3

REPORT INFORMATION
  Report Type: Spontaneous
  Country: US (occurrence: US)
  Receive Date: 20250820
  Receipt Date: 20250820
  Transmission Date: 20251021
  Serious: Yes (Other)
  Sender: SPECGX
  Company Number: US-SPECGX-T202501384

PATIENT

DRUGS (2)
  1. METHADONE [Suspect]
     Active Substance: METHADONE HYDROCHLORIDE
     Indication: Drug dependence
     Route: 065
  2. DISULFIRAM [Suspect]
     Active Substance: DISULFIRAM
     Indication: Drug dependence
     Route: 065

REACTIONS (1)
  - Hallucination, auditory [Unknown]
